FAERS Safety Report 11626241 (Version 2)
Quarter: 2015Q4

REPORT INFORMATION
  Report Type: Report from Study
  Country: US (occurrence: US)
  Receive Date: 20151013
  Receipt Date: 20151127
  Transmission Date: 20160304
  Serious: Yes (Other)
  Sender: FDA-Public Use
  Company Number: US-AMGEN-USASP2015105750

PATIENT
  Age: 64 Year
  Sex: Female

DRUGS (1)
  1. ENBREL [Suspect]
     Active Substance: ETANERCEPT
     Indication: RHEUMATOID ARTHRITIS
     Dosage: UNK UNK, UNK
     Route: 065
     Dates: start: 20150821

REACTIONS (9)
  - Lung carcinoma cell type unspecified stage III [Unknown]
  - Joint swelling [Unknown]
  - Drug dose omission [Unknown]
  - Metastases to bone [Unknown]
  - Cough [Unknown]
  - Pain in extremity [Unknown]
  - Haemoptysis [Unknown]
  - Peripheral swelling [Unknown]
  - Pulmonary mass [Unknown]

NARRATIVE: CASE EVENT DATE: 2015
